FAERS Safety Report 6369117-9 (Version None)
Quarter: 2009Q3

REPORT INFORMATION
  Report Type: 
  Country: None (occurrence: None)
  Receive Date: 20090922
  Receipt Date: 20090909
  Transmission Date: 20100115
  Serious: Yes (Other)
  Sender: FDA-Public Use
  Company Number: PHHY2009JP38839

PATIENT
  Age: 35 Year
  Sex: Male

DRUGS (2)
  1. RITALIN [Suspect]
     Route: 048
  2. OTHER HYPNOTICS AND SEDATIVES [Concomitant]
     Indication: INTENTIONAL OVERDOSE
     Route: 048

REACTIONS (7)
  - ABNORMAL BEHAVIOUR [None]
  - ACTIVITIES OF DAILY LIVING IMPAIRED [None]
  - AFFECT LABILITY [None]
  - AGGRESSION [None]
  - DRUG DEPENDENCE [None]
  - INTENTIONAL DRUG MISUSE [None]
  - ROAD TRAFFIC ACCIDENT [None]
